FAERS Safety Report 25674577 (Version 1)
Quarter: 2025Q3

REPORT INFORMATION
  Report Type: Spontaneous
  Country: EU (occurrence: EU)
  Receive Date: 20250813
  Receipt Date: 20250813
  Transmission Date: 20251021
  Serious: Yes (Other)
  Sender: HIKMA
  Company Number: None

PATIENT
  Age: 58 Year
  Sex: Male
  Weight: 71 kg

DRUGS (1)
  1. AMOXICILLIN\CLAVULANIC ACID [Suspect]
     Active Substance: AMOXICILLIN\CLAVULANIC ACID
     Indication: Urosepsis
     Dosage: 1200 MILLIGRAM, Q8H
     Route: 065
     Dates: start: 20250326, end: 20250329

REACTIONS (3)
  - Hepatotoxicity [Recovered/Resolved]
  - Cell death [Recovered/Resolved]
  - Liver disorder [Recovered/Resolved]

NARRATIVE: CASE EVENT DATE: 20250327
